FAERS Safety Report 5012981-6 (Version None)
Quarter: 2006Q2

REPORT INFORMATION
  Report Type: 
  Country: None (occurrence: None)
  Receive Date: 20060525
  Receipt Date: 20060512
  Transmission Date: 20061013
  Serious: Yes (Hospitalization)
  Sender: FDA-Public Use
  Company Number: 2006064529

PATIENT
  Age: 17 Year
  Sex: Male
  Weight: 56 kg

DRUGS (7)
  1. SOLU-MEDROL [Suspect]
     Indication: ILL-DEFINED DISORDER
     Dosage: 60 MG INTRAVENOUS
     Route: 042
     Dates: start: 20060221, end: 20060221
  2. PROPOFOL [Concomitant]
  3. REMIFENTANIL HYDROCHLORIDE [Concomitant]
  4. LIDOCAINE [Concomitant]
  5. PARACETAMOL [Concomitant]
  6. KETOPROFEN [Concomitant]
  7. NALBUPHINE HCL [Concomitant]

REACTIONS (9)
  - BRADYCARDIA [None]
  - DRUG TOXICITY [None]
  - HEADACHE [None]
  - HYPERTENSION [None]
  - HYPOTENSION [None]
  - MALAISE [None]
  - NAUSEA [None]
  - PULMONARY OEDEMA [None]
  - TACHYCARDIA [None]
